FAERS Safety Report 7400153-7 (Version None)
Quarter: 2011Q2

REPORT INFORMATION
  Report Type: 
  Country: None (occurrence: None)
  Receive Date: 20110405
  Receipt Date: 20110405
  Transmission Date: 20111010
  Serious: Yes (Other)
  Sender: FDA-Public Use
  Company Number: None

PATIENT
  Age: 47 Year
  Sex: Female
  Weight: 97.5234 kg

DRUGS (1)
  1. VIVELLE-DOT [Suspect]
     Indication: HORMONE THERAPY
     Dosage: 1 PATCH TWICE A WEEK OTHER
     Route: 050
     Dates: start: 20090128, end: 20110401

REACTIONS (10)
  - PRODUCT ADHESION ISSUE [None]
  - SYNCOPE [None]
  - DIZZINESS [None]
  - ASTHENIA [None]
  - DEPRESSION [None]
  - EXPIRED DRUG ADMINISTERED [None]
  - DRUG DISPENSING ERROR [None]
  - APPLICATION SITE PAIN [None]
  - FATIGUE [None]
  - DRUG INEFFECTIVE [None]
